FAERS Safety Report 20752993 (Version 2)
Quarter: 2023Q2

REPORT INFORMATION
  Report Type: Spontaneous
  Country: US (occurrence: None)
  Receive Date: 20220426
  Receipt Date: 20230420
  Transmission Date: 20230721
  Serious: No
  Sender: FDA-Public Use
  Company Number: US-ROCHE-2961251

PATIENT
  Sex: Female

DRUGS (24)
  1. ESBRIET [Suspect]
     Active Substance: PIRFENIDONE
     Indication: Diverticulum intestinal
     Dosage: TAKE ONE TABLET THREE TIME DAILY FOR 1 WEEK, THEN TAKE TWO TABLET THREE TIME DAILY FOR 1 WEEK, THEN
     Route: 048
     Dates: start: 20211113
  2. ESBRIET [Suspect]
     Active Substance: PIRFENIDONE
     Indication: Large intestine perforation
     Route: 048
     Dates: start: 20210122, end: 20220222
  3. ESBRIET [Suspect]
     Active Substance: PIRFENIDONE
     Indication: Abscess
     Route: 048
     Dates: start: 20211109
  4. AMOXICILLIN [Concomitant]
     Active Substance: AMOXICILLIN
  5. PANTOPRAZOLE [Concomitant]
     Active Substance: PANTOPRAZOLE
  6. BENADRYL [Concomitant]
     Active Substance: DIPHENHYDRAMINE HYDROCHLORIDE
  7. IMODIUM A-D [Concomitant]
     Active Substance: LOPERAMIDE HYDROCHLORIDE
  8. PROTONIX [Concomitant]
     Active Substance: PANTOPRAZOLE SODIUM
  9. ALPHA LIPOIC [Concomitant]
  10. AMBIEN [Concomitant]
     Active Substance: ZOLPIDEM TARTRATE
  11. BETAMETHASONE [Concomitant]
     Active Substance: BETAMETHASONE
  12. CLARITIN [Concomitant]
     Active Substance: LORATADINE
  13. FAMOTIDINE [Concomitant]
     Active Substance: FAMOTIDINE
  14. FOLIC ACID [Concomitant]
     Active Substance: FOLIC ACID
  15. FLONASE [Concomitant]
     Active Substance: FLUTICASONE PROPIONATE
     Dosage: 50 MCG
  16. DESONIDE [Concomitant]
     Active Substance: DESONIDE
  17. HYDROCHLOROTHIAZIDE [Concomitant]
     Active Substance: HYDROCHLOROTHIAZIDE
  18. HYDROXYZINE [Concomitant]
     Active Substance: HYDROXYZINE HYDROCHLORIDE
  19. ONDANSETRON [Concomitant]
     Active Substance: ONDANSETRON
  20. PROAIR HFA [Concomitant]
     Active Substance: ALBUTEROL SULFATE
     Dosage: 108 90 MC
  21. TRIAMCINOLONE [Concomitant]
     Active Substance: TRIAMCINOLONE
  22. TYLENOL [Concomitant]
     Active Substance: ACETAMINOPHEN
  23. VITAMIN B12 [Concomitant]
     Active Substance: CYANOCOBALAMIN
     Dosage: 100 MCG
  24. VITAMIN E [Concomitant]
     Active Substance: .ALPHA.-TOCOPHEROL
     Dosage: 1000 UNIT

REACTIONS (6)
  - Nausea [Not Recovered/Not Resolved]
  - Dizziness [Unknown]
  - Sensitive skin [Unknown]
  - Blister [Unknown]
  - Wheezing [Not Recovered/Not Resolved]
  - Dizziness [Not Recovered/Not Resolved]
